FAERS Safety Report 20612044 (Version 1)
Quarter: 2022Q1

REPORT INFORMATION
  Report Type: Spontaneous
  Country: US (occurrence: US)
  Receive Date: 20220318
  Receipt Date: 20220318
  Transmission Date: 20220424
  Serious: No
  Sender: FDA-Public Use
  Company Number: US-ABBVIE-22K-163-4266798-00

PATIENT
  Age: 57 Year
  Sex: Female
  Weight: 81.720 kg

DRUGS (8)
  1. RINVOQ [Suspect]
     Active Substance: UPADACITINIB
     Indication: Rheumatoid arthritis
     Route: 048
     Dates: start: 202010, end: 20210717
  2. RINVOQ [Suspect]
     Active Substance: UPADACITINIB
     Route: 048
     Dates: start: 202108
  3. COVID-19 VACCINE [Concomitant]
     Indication: COVID-19 immunisation
     Dosage: PFIZER
     Route: 030
     Dates: start: 20210411, end: 20210411
  4. COVID-19 VACCINE [Concomitant]
     Dosage: PFIZER
     Route: 030
     Dates: start: 20210504, end: 20210504
  5. COVID-19 VACCINE [Concomitant]
     Dosage: PFIZER
     Route: 030
     Dates: start: 20211119, end: 20211119
  6. ALBUTEROL [Concomitant]
     Active Substance: ALBUTEROL
     Indication: Asthma
  7. ATENOLOL [Concomitant]
     Active Substance: ATENOLOL
     Indication: Hypertension
  8. SYNTHROID [Concomitant]
     Active Substance: LEVOTHYROXINE SODIUM
     Indication: Hypothyroidism

REACTIONS (16)
  - Herpes zoster [Recovered/Resolved]
  - Herpes zoster [Recovered/Resolved]
  - Respiratory tract infection [Recovered/Resolved]
  - Dyspnoea [Recovered/Resolved]
  - Oropharyngeal pain [Recovered/Resolved]
  - Chills [Recovered/Resolved]
  - Hyperhidrosis [Recovered/Resolved]
  - Nasal congestion [Recovered/Resolved]
  - Hot flush [Not Recovered/Not Resolved]
  - Chills [Not Recovered/Not Resolved]
  - Hyperhidrosis [Recovered/Resolved]
  - Oropharyngeal pain [Not Recovered/Not Resolved]
  - Throat irritation [Not Recovered/Not Resolved]
  - Dysphonia [Not Recovered/Not Resolved]
  - Skin ulcer [Not Recovered/Not Resolved]
  - Rash [Not Recovered/Not Resolved]

NARRATIVE: CASE EVENT DATE: 20210701
